FAERS Safety Report 7030183-9 (Version None)
Quarter: 2010Q4

REPORT INFORMATION
  Report Type: 
  Country: None (occurrence: None)
  Receive Date: 20101006
  Receipt Date: 20101001
  Transmission Date: 20110411
  Serious: Yes (Other)
  Sender: FDA-Public Use
  Company Number: GB-BRISTOL-MYERS SQUIBB COMPANY-15316144

PATIENT
  Age: 30 Year
  Sex: Female

DRUGS (3)
  1. ABILIFY [Suspect]
     Indication: PSYCHOTIC DISORDER
     Dosage: ALSO TAKEN FOR 2 YEARS.
  2. ABILIFY [Suspect]
     Indication: MANIA
     Dosage: ALSO TAKEN FOR 2 YEARS.
  3. HALOPERIDOL [Concomitant]

REACTIONS (1)
  - PSYCHOTIC DISORDER [None]
